FAERS Safety Report 21196093 (Version 1)
Quarter: 2022Q3

REPORT INFORMATION
  Report Type: Spontaneous
  Country: US (occurrence: None)
  Receive Date: 20220810
  Receipt Date: 20220810
  Transmission Date: 20221027
  Serious: Yes (Other)
  Sender: FDA-Public Use
  Company Number: None

PATIENT
  Age: 38 Year
  Sex: Female
  Weight: 85.5 kg

DRUGS (2)
  1. PAXLOVID [Suspect]
     Active Substance: NIRMATRELVIR\RITONAVIR
     Indication: COVID-19
     Dosage: FREQUENCY : TWICE A DAY;?
     Route: 048
     Dates: start: 20220809, end: 20220809
  2. Thera Flu [Concomitant]
     Dates: start: 20220805, end: 20220808

REACTIONS (10)
  - Headache [None]
  - Syncope [None]
  - Hypoaesthesia oral [None]
  - Choking [None]
  - Dysphagia [None]
  - Dyspnoea [None]
  - Throat tightness [None]
  - Nausea [None]
  - Tachycardia [None]
  - Vision blurred [None]

NARRATIVE: CASE EVENT DATE: 20220809
